FAERS Safety Report 5306038-4 (Version None)
Quarter: 2007Q2

REPORT INFORMATION
  Report Type: 
  Country: None (occurrence: None)
  Receive Date: 20070424
  Receipt Date: 20070412
  Transmission Date: 20071010
  Serious: Yes (Hospitalization)
  Sender: FDA-Public Use
  Company Number: FR-ROCHE-493084

PATIENT
  Age: 62 Year
  Sex: Female

DRUGS (2)
  1. GANCICLOVIR SODIUM [Suspect]
     Indication: GLIOMA
     Route: 042
     Dates: start: 20061118, end: 20061202
  2. CEREPRO [Suspect]
     Indication: GLIOMA
     Route: 018
     Dates: start: 20061113, end: 20061113

REACTIONS (1)
  - HYDROCEPHALUS [None]
